FAERS Safety Report 5812245-4 (Version None)
Quarter: 2008Q3

REPORT INFORMATION
  Report Type: 
  Country: None (occurrence: None)
  Receive Date: 20080716
  Receipt Date: 20080709
  Transmission Date: 20090109
  Serious: Yes (Hospitalization, Disabling)
  Sender: FDA-Public Use
  Company Number: US-MERCK-0807USA01674

PATIENT
  Age: 84 Year
  Sex: Male

DRUGS (12)
  1. PROSCAR [Suspect]
     Indication: BENIGN PROSTATIC HYPERPLASIA
     Route: 048
  2. SEROQUEL [Concomitant]
     Route: 065
  3. DOXAZOSIN MESYLATE [Concomitant]
     Route: 065
  4. CELEBREX [Concomitant]
     Route: 065
  5. ALLOPURINOL [Concomitant]
     Route: 065
  6. MAXZIDE [Concomitant]
     Route: 065
  7. NAMENDA [Concomitant]
     Route: 065
  8. PREDNISONE [Concomitant]
     Route: 065
  9. SULFASALAZINE [Concomitant]
     Route: 065
  10. RANITIDINE [Concomitant]
     Route: 065
  11. ASPIRIN [Concomitant]
     Route: 065
  12. ASCORBIC ACID [Concomitant]
     Route: 065

REACTIONS (3)
  - CEREBRAL ISCHAEMIA [None]
  - CONVULSION [None]
  - ISCHAEMIC STROKE [None]
